FAERS Safety Report 7652669-6 (Version None)
Quarter: 2011Q3

REPORT INFORMATION
  Report Type: 
  Country: None (occurrence: None)
  Receive Date: 20110803
  Receipt Date: 20110721
  Transmission Date: 20111222
  Serious: Yes (Hospitalization, Other)
  Sender: FDA-Public Use
  Company Number: US-ELI_LILLY_AND_COMPANY-US201107004856

PATIENT
  Sex: Male
  Weight: 58.957 kg

DRUGS (6)
  1. STRATTERA [Suspect]
     Indication: ATTENTION DEFICIT/HYPERACTIVITY DISORDER
     Dosage: 60 MG, UNKNOWN
     Dates: end: 20100404
  2. LEXAPRO [Concomitant]
     Dosage: 10 MG, EACH MORNING
     Dates: start: 20100406, end: 20100411
  3. ZOLOFT [Concomitant]
     Indication: DEPRESSION
     Dosage: 20 MG, UNKNOWN
     Dates: start: 20090101
  4. ZOLOFT [Concomitant]
     Dosage: 50 MG, QD
     Dates: end: 20100406
  5. LEXAPRO [Concomitant]
     Dosage: 20 MG, EACH MORNING
     Dates: start: 20100412
  6. STRATTERA [Suspect]
     Dosage: 60 MG, QD
     Dates: start: 20100413, end: 20100415

REACTIONS (21)
  - ABDOMINAL PAIN UPPER [None]
  - SUICIDAL IDEATION [None]
  - HOMICIDE [None]
  - AFFECTIVE DISORDER [None]
  - WEIGHT DECREASED [None]
  - MAJOR DEPRESSION [None]
  - SELF INJURIOUS BEHAVIOUR [None]
  - COUGH [None]
  - NAUSEA [None]
  - SOMNOLENCE [None]
  - NIGHTMARE [None]
  - PARANOIA [None]
  - FEELING ABNORMAL [None]
  - DEPRESSION [None]
  - ABDOMINAL PAIN [None]
  - FATIGUE [None]
  - MEMORY IMPAIRMENT [None]
  - SUICIDE ATTEMPT [None]
  - DYSPNOEA [None]
  - FLAT AFFECT [None]
  - ANXIETY [None]
